FAERS Safety Report 4999073-7 (Version None)
Quarter: 2006Q2

REPORT INFORMATION
  Report Type: 
  Country: None (occurrence: None)
  Receive Date: 20060509
  Receipt Date: 20060420
  Transmission Date: 20061013
  Serious: Yes (Hospitalization)
  Sender: FDA-Public Use
  Company Number: US200603005278

PATIENT
  Age: 34 Year
  Sex: Female
  Weight: 66.7 kg

DRUGS (4)
  1. F1-J-MC-HMEF DULOXETINE 60/120MG VS PLB I (DULOXETINE HYDROCHLORIDE) C [Suspect]
     Indication: FIBROMYALGIA
     Dosage: ORAL
     Route: 048
     Dates: start: 20051201
  2. SYNTHROID [Concomitant]
  3. ERGOCALCIFEROL, FOLIC ACID, NICOTINAMIDE, PANTHENOL,...) [Concomitant]
  4. DARVOCET-N 100 [Concomitant]

REACTIONS (11)
  - ALANINE AMINOTRANSFERASE INCREASED [None]
  - ANXIETY [None]
  - ASPARTATE AMINOTRANSFERASE INCREASED [None]
  - ASTHENIA [None]
  - CRYING [None]
  - DIFFICULTY IN WALKING [None]
  - DIZZINESS [None]
  - HOT FLUSH [None]
  - PARAPARESIS [None]
  - RESPIRATORY RATE INCREASED [None]
  - SPINAL OSTEOARTHRITIS [None]
